FAERS Safety Report 10162565 (Version 7)
Quarter: 2015Q3

REPORT INFORMATION
  Report Type: Report from Study
  Country: US (occurrence: US)
  Receive Date: 20140509
  Receipt Date: 20150825
  Transmission Date: 20151125
  Serious: Yes (Hospitalization, Other)
  Sender: FDA-Public Use
  Company Number: US-SA-2014SA044342

PATIENT
  Age: 73 Year
  Sex: Female

DRUGS (2)
  1. AUBAGIO [Suspect]
     Active Substance: TERIFLUNOMIDE
     Indication: MULTIPLE SCLEROSIS
     Route: 048
     Dates: start: 20140323
  2. AUBAGIO [Suspect]
     Active Substance: TERIFLUNOMIDE
     Indication: MULTIPLE SCLEROSIS
     Route: 048
     Dates: start: 20140429

REACTIONS (14)
  - Fall [Unknown]
  - Spinal column stenosis [Recovering/Resolving]
  - Back pain [Unknown]
  - Hypertension [Unknown]
  - Vomiting [Unknown]
  - Urinary incontinence [Unknown]
  - Muscular weakness [Recovering/Resolving]
  - Memory impairment [Unknown]
  - Muscle twitching [Unknown]
  - Muscle spasms [Unknown]
  - Drug dose omission [Unknown]
  - Cystitis [Unknown]
  - Wrist fracture [Unknown]
  - Memory impairment [Unknown]

NARRATIVE: CASE EVENT DATE: 2014
